FAERS Safety Report 8486280-4 (Version None)
Quarter: 2012Q3

REPORT INFORMATION
  Report Type: 
  Country: None (occurrence: None)
  Receive Date: 20120703
  Receipt Date: 20120622
  Transmission Date: 20120928
  Serious: Yes (Other)
  Sender: FDA-Public Use
  Company Number: US-GLAXOSMITHKLINE-A0734589A

PATIENT
  Age: 68 Year
  Sex: Male
  Weight: 109.1 kg

DRUGS (14)
  1. ASTELIN [Concomitant]
  2. GLYBURIDE [Concomitant]
  3. FLONASE [Concomitant]
  4. ADVICOR [Concomitant]
  5. LIPITOR [Concomitant]
  6. METOPROLOL SUCCINATE [Concomitant]
  7. PULMICORT [Concomitant]
  8. AVANDIA [Suspect]
     Indication: TYPE 2 DIABETES MELLITUS
     Dosage: 4MG TWICE PER DAY
     Route: 048
     Dates: start: 20040801, end: 20071001
  9. TOPROL-XL [Concomitant]
  10. LISINOPRIL [Concomitant]
  11. LASIX [Concomitant]
     Dosage: 20MG AS REQUIRED
  12. ISOSORBIDE [Concomitant]
  13. CIMETIDINE [Concomitant]
     Dosage: 400MG THREE TIMES PER DAY
  14. SINGULAIR [Concomitant]
     Dosage: 10MG PER DAY

REACTIONS (2)
  - MYOCARDIAL INFARCTION [None]
  - CORONARY ARTERY DISEASE [None]
